FAERS Safety Report 22398084 (Version 1)
Quarter: 2023Q2

REPORT INFORMATION
  Report Type: Spontaneous
  Country: ES (occurrence: ES)
  Receive Date: 20230602
  Receipt Date: 20230602
  Transmission Date: 20230721
  Serious: Yes (Other)
  Sender: FDA-Public Use
  Company Number: ES-SUN PHARMACEUTICAL INDUSTRIES LTD-2023R1-388329

PATIENT
  Age: 64 Year
  Sex: Male

DRUGS (2)
  1. LATANOPROST [Suspect]
     Active Substance: LATANOPROST
     Indication: Glaucoma
     Dosage: UNK
     Route: 047
  2. TIMOLOL [Suspect]
     Active Substance: TIMOLOL
     Indication: Glaucoma
     Dosage: UNK
     Route: 065

REACTIONS (3)
  - Cross sensitivity reaction [Unknown]
  - Eye pruritus [Unknown]
  - Erythema [Unknown]
